FAERS Safety Report 23053395 (Version 1)
Quarter: 2023Q4

REPORT INFORMATION
  Report Type: Spontaneous
  Country: US (occurrence: US)
  Receive Date: 20231011
  Receipt Date: 20231011
  Transmission Date: 20240109
  Serious: No
  Sender: FDA-Public Use
  Company Number: US-drreddys-SPO/USA/23/0176659

PATIENT
  Age: 62 Year

DRUGS (1)
  1. ZENATANE [Suspect]
     Active Substance: ISOTRETINOIN
     Indication: Product used for unknown indication
     Dosage: RMA ISSUE DATE: 09 MARCH 2023 01:38:27 PM, 26 APRIL 2023 4:20:57 PM, 20 JULY 2023 05:00:29 PM

REACTIONS (1)
  - Dry skin [Unknown]
